FAERS Safety Report 7532622-3 (Version None)
Quarter: 2011Q2

REPORT INFORMATION
  Report Type: 
  Country: None (occurrence: None)
  Receive Date: 20110608
  Receipt Date: 20110603
  Transmission Date: 20111010
  Serious: Yes (Other)
  Sender: FDA-Public Use
  Company Number: US-ABBOTT-11P-163-0730092-00

PATIENT
  Sex: Female
  Weight: 71.278 kg

DRUGS (15)
  1. HUMIRA [Suspect]
     Indication: RHEUMATOID ARTHRITIS
     Dates: start: 20060101
  2. NASONEX [Concomitant]
     Indication: ASTHMA
  3. FLEXERIL [Concomitant]
     Indication: MUSCLE SPASMS
  4. FOLIC ACID [Concomitant]
     Indication: VITAMIN SUPPLEMENTATION
  5. FLEXERIL [Concomitant]
     Indication: INSOMNIA
  6. PREDNISONE [Concomitant]
     Indication: RHEUMATOID ARTHRITIS
  7. ALBUTEROL SULFATE AUTOHALER [Concomitant]
     Indication: ASTHMA
  8. ATENOLOL [Concomitant]
     Indication: HYPERTENSION
  9. BENICAR HCT [Concomitant]
     Indication: HYPERTENSION
  10. PREDNISONE [Concomitant]
     Indication: FIBROMYALGIA
  11. ELAVIL [Concomitant]
     Indication: PAIN
     Dosage: AT BEDTIME
  12. CO Q-10 [Concomitant]
     Indication: VITAMIN SUPPLEMENTATION
  13. MEGADOSE VITAMIN [Concomitant]
     Indication: VITAMIN SUPPLEMENTATION
  14. LOVAZA [Concomitant]
     Indication: SUPPLEMENTATION THERAPY
  15. CALCIUM CARBONATE [Concomitant]
     Indication: MINERAL SUPPLEMENTATION

REACTIONS (4)
  - RESTLESS LEGS SYNDROME [None]
  - SKIN LESION [None]
  - SQUAMOUS CELL CARCINOMA OF SKIN [None]
  - ABDOMINAL DISCOMFORT [None]
